FAERS Safety Report 6945266-9 (Version None)
Quarter: 2010Q3

REPORT INFORMATION
  Report Type: 
  Country: None (occurrence: None)
  Receive Date: 20100827
  Receipt Date: 20100716
  Transmission Date: 20110219
  Serious: No
  Sender: FDA-Public Use
  Company Number: US-KINGPHARMUSA00001-K201000897

PATIENT
  Sex: Female

DRUGS (3)
  1. FLECTOR [Suspect]
     Indication: ARTHRITIS
     Dosage: UNK
     Route: 061
     Dates: start: 20100101, end: 20100101
  2. NEXIUM [Concomitant]
     Indication: GASTRIC DISORDER
  3. ICY HOT [Concomitant]

REACTIONS (2)
  - APPLICATION SITE ERYTHEMA [None]
  - DIARRHOEA [None]
